FAERS Safety Report 10034785 (Version 1)
Quarter: 2014Q1

REPORT INFORMATION
  Report Type: Spontaneous
  Country: US (occurrence: None)
  Receive Date: 20140306
  Receipt Date: 20140306
  Transmission Date: 20141002
  Serious: Yes (Hospitalization, Other)
  Sender: FDA-Public Use
  Company Number: 163-21880-13010280

PATIENT
  Age: 89 Year
  Sex: Female
  Weight: 85.91 kg

DRUGS (27)
  1. REVLIMID (LENALIDOMIDE) (5 MILLIGRAM, CAPSULES) [Suspect]
     Indication: MYELODYSPLASTIC SYNDROME
     Dosage: 5 MG, 21 IN 28 D, PO
     Route: 048
     Dates: start: 20121107, end: 20130117
  2. OXYBUTYNIN (OXYBUTYNIN) (TABLETS) [Concomitant]
  3. FUROSEMIDE (FUROSEMIDE) (TABLETS) [Concomitant]
  4. CIPROFLOXACIN (CIPROFLOXACIN) [Concomitant]
  5. KLOR-CON (POTASSIUM CHLORIDE) [Concomitant]
  6. LEVOTHYROXINE (LEVOTHYROXINE) [Concomitant]
  7. DOXYCYCLINE HYCLATE (DOXYCYCLINE HYCLATE) [Concomitant]
  8. AMLODIPOME BESYLATE (AMLODIPINE BESILATE) [Concomitant]
  9. METOPROLOL SUCCINATE (METOPROLOL SUCCINATE) [Concomitant]
  10. PREDNISOLONE (PREDNISOLONE) (OPHTHALMIC) [Concomitant]
  11. CIPRODEX (GASTROGYL) (SUSPENSION) [Concomitant]
  12. CETIRIZINE (CETIRIZINE) (TABLETS) [Concomitant]
  13. METROGEL (METRONIDAZOLE) (GEL) [Concomitant]
  14. HYDOXYZINE HCL (HYDROXYZINE HYDROCHLORIDE) (TABLETS) [Concomitant]
  15. ACETAMINOPHEN (PARACETAMOL) (TABLETS) [Concomitant]
  16. VITAMIN D3 (COLECALCIFEROL) [Concomitant]
  17. LORATADINE (LORATADINE) (LORATADINE) [Concomitant]
  18. OMEPRAZOLE (OMEPRAZOLE) [Concomitant]
  19. POTASSIUM CHLORIDE (POTASSIUM CHLORIDE) [Concomitant]
  20. REFRESH P.M. (TEARS PLUS) (OINTMENT) [Concomitant]
  21. FML LIQUIFILM (FLUOROMETHOLONE) (EYE DROPS) [Concomitant]
  22. DAILY MULTIVITAMINS (MULTIVITAMINS) [Concomitant]
  23. GABAPENTIN (GABAPENTIN) [Concomitant]
  24. COUMADIN (WARFARIN SODIUM) [Concomitant]
  25. DIGOXIN (DIGOXIN) [Concomitant]
  26. DILTIAZEM ER (DILTIAZEM HYDROCHLORIDE) [Concomitant]
  27. INFLUENZA VACCINE (INFLUENZA VACCINE) (INFLUENZA VACCINE) [Concomitant]

REACTIONS (2)
  - Atrial fibrillation [None]
  - Anaemia [None]
